FAERS Safety Report 9772884 (Version 3)
Quarter: 2014Q1

REPORT INFORMATION
  Report Type: Spontaneous
  Country: NO (occurrence: NO)
  Receive Date: 20131219
  Receipt Date: 20140127
  Transmission Date: 20141002
  Serious: Yes (Death, Other)
  Sender: FDA-Public Use
  Company Number: PHHY2013NO146781

PATIENT
  Age: 17 Year
  Sex: Female

DRUGS (20)
  1. METHOTREXATE [Suspect]
     Indication: OSTEOSARCOMA
     Dosage: 24000 MG/M2, UNK
  2. METHOTREXATE [Suspect]
     Indication: METASTASES TO LUNG
  3. METHOTREXATE [Suspect]
     Indication: BONE CANCER METASTATIC
  4. METHOTREXATE [Suspect]
     Indication: OFF LABEL USE
  5. DOXORUBICIN [Suspect]
     Indication: OSTEOSARCOMA
     Dosage: 450 MG/M2, UNK
  6. DOXORUBICIN [Suspect]
     Indication: METASTASES TO LUNG
  7. DOXORUBICIN [Suspect]
     Indication: BONE CANCER METASTATIC
  8. DOXORUBICIN [Suspect]
     Indication: OFF LABEL USE
  9. CISPLATIN [Suspect]
     Indication: OSTEOSARCOMA
     Dosage: 580 MG/M2, UNK
  10. CISPLATIN [Suspect]
     Indication: METASTASES TO LUNG
  11. CISPLATIN [Suspect]
     Indication: BONE CANCER METASTATIC
  12. CISPLATIN [Suspect]
     Indication: OFF LABEL USE
  13. ETOPOSIDE [Suspect]
     Indication: OSTEOSARCOMA
     Dosage: 2000 MG/M2, UNK
  14. ETOPOSIDE [Suspect]
     Indication: METASTASES TO LUNG
  15. ETOPOSIDE [Suspect]
     Indication: BONE CANCER METASTATIC
  16. ETOPOSIDE [Suspect]
     Indication: OFF LABEL USE
  17. IFOSFAMIDE [Suspect]
     Indication: OSTEOSARCOMA
     Dosage: 77200 MG/M2, UNK
  18. IFOSFAMIDE [Suspect]
     Indication: METASTASES TO LUNG
  19. IFOSFAMIDE [Suspect]
     Indication: BONE CANCER METASTATIC
  20. IFOSFAMIDE [Suspect]
     Indication: OFF LABEL USE

REACTIONS (12)
  - Pulmonary toxicity [Fatal]
  - Radiation pneumonitis [Fatal]
  - Dyspnoea [Fatal]
  - Lung disorder [Fatal]
  - Chest pain [Fatal]
  - Rash [Unknown]
  - Febrile neutropenia [Unknown]
  - Thrombocytopenia [Unknown]
  - Osteosarcoma metastatic [Unknown]
  - Metastases to lung [Unknown]
  - Malignant neoplasm progression [Unknown]
  - Off label use [Unknown]
